FAERS Safety Report 4352511-5 (Version None)
Quarter: 2004Q2

REPORT INFORMATION
  Report Type: 
  Country: None (occurrence: None)
  Receive Date: 20040409
  Receipt Date: 20040107
  Transmission Date: 20050107
  Serious: No
  Sender: FDA-Public Use
  Company Number: PHEH2004US00607

PATIENT
  Age: 4 Year
  Sex: Male

DRUGS (1)
  1. ELIDEL [Suspect]
     Indication: ECZEMA INFANTILE
     Dosage: BID, TOPICAL
     Route: 061
     Dates: start: 20031217

REACTIONS (2)
  - DRY SKIN [None]
  - ERYTHEMA [None]
